FAERS Safety Report 10384277 (Version 1)
Quarter: 2014Q1

REPORT INFORMATION
  Report Type: Spontaneous
  Country: US (occurrence: None)
  Receive Date: 20140306
  Receipt Date: 20140306
  Transmission Date: 20141002
  Serious: Yes (Hospitalization)
  Sender: FDA-Public Use
  Company Number: 163-21880-13052335

PATIENT
  Age: 52 Year
  Sex: Male
  Weight: 90.72 kg

DRUGS (7)
  1. REVLIMID ( LENALIDOMIDE) ( 25 MILLIGRAM, CAPSULES) [Suspect]
     Indication: PLASMA CELL MYELOMA
     Route: 048
     Dates: start: 200811
  2. ZOLOFT (SERTRALINE HYDROCHLORIDE) (TABLETS) [Concomitant]
  3. ATENOLOL (TABLETS) [Concomitant]
  4. CRESTOR (ROSUVASTATIN) (TABLETS) [Concomitant]
  5. COUMADIN (WARFARIN SODIUM) (TABLETS) [Concomitant]
  6. ACYCLOVIR (ACICLOVIR) (TABLETS) [Concomitant]
  7. TYLENOL (PARACEMTAMOL) (TABLETS) [Concomitant]

REACTIONS (1)
  - Deep vein thrombosis [None]
